FAERS Safety Report 20110658 (Version 1)
Quarter: 2021Q4

REPORT INFORMATION
  Report Type: Spontaneous
  Country: US (occurrence: None)
  Receive Date: 20211124
  Receipt Date: 20211124
  Transmission Date: 20220303
  Serious: Yes (Other)
  Sender: FDA-Public Use
  Company Number: None

PATIENT
  Age: 53 Year
  Sex: Male
  Weight: 103.5 kg

DRUGS (1)
  1. BAMLANIVIMAB\ETESEVIMAB [Suspect]
     Active Substance: BAMLANIVIMAB\ETESEVIMAB
     Indication: COVID-19
     Dosage: FREQUENCY : ONCE;?
     Dates: start: 20211124, end: 20211124

REACTIONS (7)
  - Flushing [None]
  - Restlessness [None]
  - Tachycardia [None]
  - Hypertension [None]
  - Chest discomfort [None]
  - Flank pain [None]
  - Infusion related reaction [None]

NARRATIVE: CASE EVENT DATE: 20211124
